FAERS Safety Report 6611940-7 (Version None)
Quarter: 2010Q1

REPORT INFORMATION
  Report Type: 
  Country: None (occurrence: None)
  Receive Date: 20100226
  Receipt Date: 20100226
  Transmission Date: 20100710
  Serious: No
  Sender: FDA-Public Use
  Company Number: None

PATIENT

DRUGS (1)
  1. ROLAIDS [Suspect]

REACTIONS (10)
  - COUGH [None]
  - DYSGEUSIA [None]
  - DYSPHONIA [None]
  - DYSPNOEA [None]
  - FRUSTRATION [None]
  - IRRITABILITY [None]
  - NASAL CONGESTION [None]
  - PAROSMIA [None]
  - PRODUCT QUALITY ISSUE [None]
  - SALIVARY HYPERSECRETION [None]
